FAERS Safety Report 15304853 (Version 1)
Quarter: 2018Q3

REPORT INFORMATION
  Report Type: Spontaneous
  Country: NO (occurrence: NO)
  Receive Date: 20180822
  Receipt Date: 20180822
  Transmission Date: 20181010
  Serious: Yes (Hospitalization)
  Sender: FDA-Public Use
  Company Number: NO-ROCHE-2172995

PATIENT
  Age: 76 Year
  Sex: Male

DRUGS (12)
  1. TECENTRIQ [Suspect]
     Active Substance: ATEZOLIZUMAB
     Indication: LUNG NEOPLASM MALIGNANT
     Dosage: FIRST INFUSION
     Route: 042
     Dates: start: 20180419
  2. LAXOBERAL [Concomitant]
     Active Substance: SODIUM PICOSULFATE
     Dosage: 10?20 DROPS IN THE EVENING. AS NECCESSARY
     Route: 048
  3. LIPITOR [Concomitant]
     Active Substance: ATORVASTATIN CALCIUM
     Route: 048
  4. DUPHALAC (NORWAY) [Concomitant]
     Dosage: 10?15 MILLILITRES 3 TIMES A DAY. AS NECCESSARY
     Route: 048
  5. TECENTRIQ [Suspect]
     Active Substance: ATEZOLIZUMAB
     Dosage: 2ND INFUSION (DELAYED DUE TO HOSPITALIZATIONS)
     Route: 042
     Dates: start: 20180529
  6. IMOVANE [Concomitant]
     Active Substance: ZOPICLONE
     Dosage: AS NECCESSARY
     Route: 048
  7. ALBYL?E [Concomitant]
     Active Substance: ASPIRIN\MAGNESIUM OXIDE
     Route: 048
  8. MEDROL [Concomitant]
     Active Substance: METHYLPREDNISOLONE
     Route: 048
  9. TECENTRIQ [Suspect]
     Active Substance: ATEZOLIZUMAB
     Dosage: 3RD INFUSION
     Route: 042
     Dates: start: 20180619
  10. SOMAC [Concomitant]
     Active Substance: PANTOPRAZOLE SODIUM
     Route: 048
  11. OXYCONTIN [Concomitant]
     Active Substance: OXYCODONE HYDROCHLORIDE
     Dosage: IN THE EVENING. CAN BE INCREASED TO MORNING AND EVENING.
     Route: 048
  12. METOPROLOL TARTRATE. [Concomitant]
     Active Substance: METOPROLOL TARTRATE
     Route: 048

REACTIONS (1)
  - Anaphylactic reaction [Recovering/Resolving]

NARRATIVE: CASE EVENT DATE: 20180619
